FAERS Safety Report 8429340-6 (Version None)
Quarter: 2012Q2

REPORT INFORMATION
  Report Type: 
  Country: None (occurrence: None)
  Receive Date: 20120612
  Receipt Date: 20120604
  Transmission Date: 20120825
  Serious: Yes (Hospitalization)
  Sender: FDA-Public Use
  Company Number: US-BAYER-2011-108052

PATIENT
  Age: 29 Year
  Sex: Female
  Weight: 79.819 kg

DRUGS (8)
  1. YAZ [Suspect]
     Indication: CONTRACEPTION
     Dosage: UNK
     Dates: start: 20080501, end: 20080601
  2. DROSPIRENONE AND ETHINYL ESTRADIOL [Suspect]
     Indication: CONTRACEPTION
     Dosage: UNK
     Dates: start: 20081101, end: 20090201
  3. DROSPIRENONE AND ETHINYL ESTRADIOL [Suspect]
     Dosage: UNK
     Dates: start: 20090901, end: 20100101
  4. LEVAQUIN [Concomitant]
     Dosage: 500 MG, UNK
     Route: 048
     Dates: start: 20091216
  5. TESSALON [Concomitant]
     Dosage: 100 MG, UNK
     Route: 048
     Dates: start: 20091216
  6. ZOLOFT [Concomitant]
     Dosage: UNK
     Dates: start: 20021001
  7. COMBIVENT [Concomitant]
     Dosage: UNK
     Route: 045
     Dates: start: 20091216
  8. SEPTRA [Concomitant]
     Dosage: 160-800MG
     Route: 048
     Dates: start: 20091216

REACTIONS (6)
  - CHOLECYSTITIS CHRONIC [None]
  - CHOLESTEROSIS [None]
  - PAIN [None]
  - ANXIETY [None]
  - BILIARY DYSKINESIA [None]
  - EMOTIONAL DISTRESS [None]
